FAERS Safety Report 25500735 (Version 1)
Quarter: 2025Q3

REPORT INFORMATION
  Report Type: Spontaneous
  Country: EU (occurrence: EU)
  Receive Date: 20250701
  Receipt Date: 20250701
  Transmission Date: 20251021
  Serious: Yes (Hospitalization, Other)
  Sender: PFIZER
  Company Number: None

PATIENT
  Age: 15 Year
  Sex: Male
  Weight: 49.5 kg

DRUGS (4)
  1. BESPONSA [Suspect]
     Active Substance: INOTUZUMAB OZOGAMICIN
     Indication: Acute lymphocytic leukaemia
     Route: 042
     Dates: start: 20250206, end: 20250206
  2. METHOTREXATE [Concomitant]
     Active Substance: METHOTREXATE
     Indication: Acute lymphocytic leukaemia
     Route: 037
     Dates: start: 20250205, end: 20250205
  3. CYTARABINE [Concomitant]
     Active Substance: CYTARABINE
     Indication: Acute lymphocytic leukaemia
     Route: 037
     Dates: start: 20250205, end: 20250205
  4. PREDNISOLONE [Concomitant]
     Active Substance: PREDNISOLONE
     Indication: Acute lymphocytic leukaemia
     Route: 037
     Dates: start: 20250205, end: 20250205

REACTIONS (8)
  - Venoocclusive liver disease [Recovered/Resolved]
  - Platelet count decreased [Recovered/Resolved]
  - Hepatomegaly [Recovered/Resolved]
  - Gallbladder oedema [Recovered/Resolved]
  - Liver tenderness [Recovered/Resolved]
  - Fibrin D dimer increased [Recovered/Resolved]
  - Transaminases increased [Recovered/Resolved]
  - Off label use [Unknown]

NARRATIVE: CASE EVENT DATE: 20250206
